FAERS Safety Report 13630449 (Version 1)
Quarter: 2017Q2

REPORT INFORMATION
  Report Type: Spontaneous
  Country: US (occurrence: US)
  Receive Date: 20170531
  Receipt Date: 20170531
  Transmission Date: 20170830
  Serious: No
  Sender: FDA-Public Use
  Company Number: US-ASTELLAS-1303224

PATIENT
  Sex: Female

DRUGS (4)
  1. TARCEVA [Suspect]
     Active Substance: ERLOTINIB HYDROCHLORIDE
     Dosage: 1 TABLET
     Route: 048
     Dates: start: 20130419
  2. TARCEVA [Suspect]
     Active Substance: ERLOTINIB HYDROCHLORIDE
     Indication: LUNG NEOPLASM MALIGNANT
     Route: 048
     Dates: start: 20120828
  3. TARCEVA [Suspect]
     Active Substance: ERLOTINIB HYDROCHLORIDE
     Dosage: 1 TABLET
     Route: 048
     Dates: start: 20120901
  4. TARCEVA [Suspect]
     Active Substance: ERLOTINIB HYDROCHLORIDE
     Route: 048
     Dates: start: 20120901

REACTIONS (10)
  - Fatigue [Unknown]
  - Pruritus [Unknown]
  - Micturition disorder [Unknown]
  - Rash [Recovered/Resolved]
  - Seborrhoea [Recovered/Resolved]
  - Pain in extremity [Unknown]
  - Rash [Unknown]
  - Weight decreased [Unknown]
  - Dry skin [Unknown]
  - Decreased appetite [Unknown]
